FAERS Safety Report 4822106-5 (Version None)
Quarter: 2005Q4

REPORT INFORMATION
  Report Type: 
  Country: None (occurrence: None)
  Receive Date: 20051103
  Receipt Date: 20051017
  Transmission Date: 20060501
  Serious: Yes (Other)
  Sender: FDA-Public Use
  Company Number: FR_051007349

PATIENT
  Age: 75 Year
  Sex: Male

DRUGS (3)
  1. ZYPREXA [Suspect]
     Indication: PSYCHOTIC DISORDER
     Dosage: 30 MG DAY
     Dates: start: 20020101, end: 20050826
  2. OMEPRAZOLE [Concomitant]
  3. FORLAX (MACROGOL) [Concomitant]

REACTIONS (4)
  - CONDITION AGGRAVATED [None]
  - PNEUMONIA ASPIRATION [None]
  - PRESCRIBED OVERDOSE [None]
  - TARDIVE DYSKINESIA [None]
